FAERS Safety Report 4472756-3 (Version None)
Quarter: 2004Q4

REPORT INFORMATION
  Report Type: 
  Country: None (occurrence: None)
  Receive Date: 20041012
  Receipt Date: 20041012
  Transmission Date: 20050328
  Serious: Yes (Other)
  Sender: FDA-Public Use
  Company Number: None

PATIENT
  Age: 32 Year
  Sex: Female
  Weight: 58.9676 kg

DRUGS (2)
  1. ZOLOFT [Suspect]
     Indication: ANXIETY
     Dosage: 150 MG ONCE DAILY ORAL
     Route: 048
     Dates: start: 20040303, end: 20040913
  2. ZOLOFT [Suspect]
     Indication: DEPRESSION
     Dosage: 150 MG ONCE DAILY ORAL
     Route: 048
     Dates: start: 20040303, end: 20040913

REACTIONS (6)
  - ABDOMINAL PAIN UPPER [None]
  - ABNORMAL BEHAVIOUR [None]
  - DRUG WITHDRAWAL SYNDROME [None]
  - IRRITABILITY [None]
  - MANIA [None]
  - SUICIDAL IDEATION [None]
